FAERS Safety Report 10026262 (Version 1)
Quarter: 2014Q1

REPORT INFORMATION
  Report Type: Spontaneous
  Country: GB (occurrence: GB)
  Receive Date: 20140320
  Receipt Date: 20140320
  Transmission Date: 20141002
  Serious: Yes (Hospitalization)
  Sender: FDA-Public Use
  Company Number: GB-TEVA-467862ISR

PATIENT
  Age: 35 Year
  Sex: Female
  Weight: 62 kg

DRUGS (7)
  1. SUMATRIPTAN [Suspect]
  2. CO-CODAMOL [Concomitant]
     Dates: start: 20131121, end: 20131205
  3. LANSOPRAZOLE [Concomitant]
     Dates: start: 20140120, end: 20140217
  4. LEVOTHYROXINE [Concomitant]
     Dates: start: 20140212
  5. LEVOTHYROXINE [Concomitant]
     Dates: start: 20131031, end: 20131226
  6. NAPROXEN [Concomitant]
     Dates: start: 20140120, end: 20140203
  7. PARACETAMOL [Concomitant]
     Dates: start: 20140213

REACTIONS (1)
  - Dystonia [Recovering/Resolving]
